FAERS Safety Report 7587716-3 (Version None)
Quarter: 2011Q3

REPORT INFORMATION
  Report Type: 
  Country: None (occurrence: None)
  Receive Date: 20110704
  Receipt Date: 20110621
  Transmission Date: 20111222
  Serious: Yes (Hospitalization, Other)
  Sender: FDA-Public Use
  Company Number: US-ELI_LILLY_AND_COMPANY-US201102002829

PATIENT
  Sex: Female
  Weight: 87.075 kg

DRUGS (4)
  1. FORTEO [Suspect]
     Indication: SENILE OSTEOPOROSIS
     Dosage: 20 UG, QD
     Route: 058
     Dates: start: 20101101
  2. FORTEO [Suspect]
     Dosage: 20 UG, QD
     Route: 058
  3. LASIX [Concomitant]
     Indication: FLUID RETENTION
  4. FORTEO [Suspect]
     Dosage: 20 UG, QD
     Route: 058

REACTIONS (7)
  - DEVICE MALFUNCTION [None]
  - WEIGHT INCREASED [None]
  - HOSPITALISATION [None]
  - MONOPLEGIA [None]
  - MALABSORPTION [None]
  - FLUID RETENTION [None]
  - DRUG DOSE OMISSION [None]
